FAERS Safety Report 11456096 (Version 4)
Quarter: 2016Q1

REPORT INFORMATION
  Report Type: Spontaneous
  Country: US (occurrence: US)
  Receive Date: 20150903
  Receipt Date: 20160202
  Transmission Date: 20160525
  Serious: No
  Sender: FDA-Public Use
  Company Number: US-PFIZER INC-2015287512

PATIENT
  Age: 90 Year
  Sex: Female
  Weight: 58.96 kg

DRUGS (1)
  1. ATORVASTATIN CALCIUM. [Suspect]
     Active Substance: ATORVASTATIN CALCIUM
     Dosage: UNK

REACTIONS (4)
  - Rash pruritic [Unknown]
  - Dyspnoea [Unknown]
  - Hypoacusis [Unknown]
  - Rash erythematous [Unknown]
